FAERS Safety Report 21679980 (Version 5)
Quarter: 2023Q2

REPORT INFORMATION
  Report Type: Report from Study
  Country: US (occurrence: US)
  Receive Date: 20221205
  Receipt Date: 20230412
  Transmission Date: 20230721
  Serious: Yes (Hospitalization)
  Sender: FDA-Public Use
  Company Number: US-GBT-018319

PATIENT
  Age: 23 Year
  Sex: Male

DRUGS (20)
  1. OXBRYTA [Suspect]
     Active Substance: VOXELOTOR
     Indication: Sickle cell disease
     Dates: start: 20220408
  2. ONDANSETRON [Suspect]
     Active Substance: ONDANSETRON
     Dosage: 4 MG, PO, ONCE
     Route: 048
     Dates: start: 20230110
  3. ADAKVEO [Concomitant]
     Active Substance: CRIZANLIZUMAB-TMCA
     Indication: Sickle cell disease
     Dosage: MONTHLY INFUSION IN NACL 0.9% 100 ML INFUSION
     Route: 042
     Dates: start: 20211217
  4. MS CONTIN [Concomitant]
     Active Substance: MORPHINE SULFATE
     Indication: Sickle cell disease
     Dosage: 60 MG 12 EXTENDED RELEASE TABLET
     Route: 048
     Dates: start: 20220531
  5. MS CONTIN [Concomitant]
     Active Substance: MORPHINE SULFATE
     Indication: Sickle cell disease
     Route: 048
     Dates: start: 20221202
  6. MS CONTIN [Concomitant]
     Active Substance: MORPHINE SULFATE
     Indication: Sickle cell disease
     Route: 048
     Dates: start: 20230105
  7. ASPERCREME NOS [Concomitant]
     Active Substance: MENTHOL\TROLAMINE SALICYLATE
     Indication: Sickle cell disease
     Dosage: 1 PATCH
     Route: 062
     Dates: start: 20220821
  8. PRINIVIL [Concomitant]
     Active Substance: LISINOPRIL
     Route: 048
     Dates: start: 20220401
  9. TYLENOL [Concomitant]
     Active Substance: ACETAMINOPHEN
     Indication: Sickle cell disease
     Dosage: ONCE AT ADAKVEO INFUSION ?SUBJECT GETS PO TYLENOL ^PRE-MED^ AT EACH ADAKVEO INFUSION APPOINTMENT
     Route: 048
     Dates: start: 20211217
  10. ROXICODONE [Concomitant]
     Active Substance: OXYCODONE HYDROCHLORIDE
     Indication: Sickle cell disease
     Dosage: ED DISCHARGE MEDICATION FOR HOME PAIN MANAGEMENT (14 TABLETS PROVIDED)?5-10 MG
     Route: 048
     Dates: start: 20220718, end: 2022
  11. ROXICODONE [Concomitant]
     Active Substance: OXYCODONE HYDROCHLORIDE
     Indication: Sickle cell disease
     Route: 048
     Dates: start: 20220923
  12. ROXICODONE [Concomitant]
     Active Substance: OXYCODONE HYDROCHLORIDE
     Indication: Sickle cell disease
     Dosage: ED DISCHARGE MEDICATION FOR AT HOME PAIN MANAGEMENT (8 TABLETS PROVIDED)
     Route: 048
     Dates: start: 20220302, end: 2022
  13. ROXICODONE [Concomitant]
     Active Substance: OXYCODONE HYDROCHLORIDE
     Indication: Sickle cell disease
     Dosage: ED DISCHARGE MEDICATION FOR AT HOME PAIN MANAGEMENT (12 TABLETS PROVIDED)
     Route: 048
     Dates: start: 20210708, end: 2021
  14. MOTRIN [Concomitant]
     Active Substance: IBUPROFEN
     Indication: Sickle cell disease
     Route: 048
     Dates: start: 20200402
  15. AMOXIL [Concomitant]
     Active Substance: AMOXICILLIN
     Indication: Prophylaxis
     Route: 048
     Dates: start: 20190322
  16. NEURONTIN [Concomitant]
     Active Substance: GABAPENTIN
     Indication: Sickle cell disease
     Route: 048
     Dates: start: 20220809
  17. PEPCID [Concomitant]
     Active Substance: FAMOTIDINE
     Indication: Sickle cell disease
     Route: 048
     Dates: start: 20220728
  18. VITAMIN D3 [Concomitant]
     Active Substance: CHOLECALCIFEROL
     Dosage: 2 TABLET/ 25 MCG (1,000 UNIT) TABLET
     Route: 048
     Dates: start: 20220708
  19. HYDREA [Concomitant]
     Active Substance: HYDROXYUREA
     Indication: Sickle cell disease
     Dosage: ALTERNATE 1500/2000 MG
     Route: 048
     Dates: start: 20170719
  20. FOLVITE [Concomitant]
     Active Substance: FOLIC ACID
     Indication: Sickle cell disease
     Route: 048
     Dates: start: 20121214

REACTIONS (2)
  - Sickle cell anaemia with crisis [Recovered/Resolved]
  - Sickle cell anaemia with crisis [Recovered/Resolved]

NARRATIVE: CASE EVENT DATE: 20221127
